FAERS Safety Report 6159256-X (Version None)
Quarter: 2009Q2

REPORT INFORMATION
  Report Type: 
  Country: None (occurrence: None)
  Receive Date: 20090417
  Receipt Date: 20090402
  Transmission Date: 20091009
  Serious: Yes (Hospitalization)
  Sender: FDA-Public Use
  Company Number: US-BRISTOL-MYERS SQUIBB COMPANY-14546360

PATIENT
  Age: 59 Year
  Sex: Male
  Weight: 88 kg

DRUGS (5)
  1. PARAPLATIN [Suspect]
     Indication: NON-SMALL CELL LUNG CANCER
     Route: 042
     Dates: start: 20090204, end: 20090204
  2. TAXOL [Suspect]
     Indication: NON-SMALL CELL LUNG CANCER
     Route: 042
     Dates: start: 20090204, end: 20090204
  3. AVASTIN [Suspect]
     Indication: NON-SMALL CELL LUNG CANCER
     Dosage: THERAPY START DATE: 12NOV08.
     Route: 042
     Dates: start: 20090204, end: 20090204
  4. AMLODIPINE [Concomitant]
     Indication: HYPERTENSION
     Dates: start: 20081028
  5. MORPHINE [Concomitant]
     Indication: PAIN
     Dates: start: 20081120

REACTIONS (1)
  - OESOPHAGITIS [None]
